FAERS Safety Report 6090681-1 (Version None)
Quarter: 2009Q1

REPORT INFORMATION
  Report Type: 
  Country: None (occurrence: None)
  Receive Date: 20090224
  Receipt Date: 20090127
  Transmission Date: 20090719
  Serious: No
  Sender: FDA-Public Use
  Company Number: US-ABBOTT-09P-163-0500789-00

PATIENT
  Sex: Male
  Weight: 95.34 kg

DRUGS (6)
  1. SIMCOR [Suspect]
     Indication: BLOOD CHOLESTEROL INCREASED
     Dosage: 500/20 MG PER DAY
     Dates: start: 20081101, end: 20081201
  2. SIMCOR [Suspect]
     Dosage: 500/20 MG BID
     Route: 048
     Dates: start: 20081201
  3. SIMCOR [Suspect]
     Dosage: 500/20 MG PER DAY
     Route: 048
     Dates: start: 20090101
  4. DIOVAN [Concomitant]
     Indication: HYPERTENSION
     Route: 048
  5. ASPIRIN [Concomitant]
     Indication: ROUTINE HEALTH MAINTENANCE
     Route: 048
  6. MULTI-VITAMIN [Concomitant]
     Indication: ROUTINE HEALTH MAINTENANCE
     Dosage: UNKNOWN
     Route: 048

REACTIONS (2)
  - FLUSHING [None]
  - INSOMNIA [None]
